FAERS Safety Report 9186293 (Version 1)
Quarter: 2013Q1

REPORT INFORMATION
  Report Type: Spontaneous
  Country: CO (occurrence: CO)
  Receive Date: 20130325
  Receipt Date: 20130325
  Transmission Date: 20140127
  Serious: Yes (Hospitalization)
  Sender: FDA-Public Use
  Company Number: CO-VIIV HEALTHCARE LIMITED-B0877060A

PATIENT
  Age: 20 Year
  Sex: Female

DRUGS (3)
  1. ZIDOVUDINE [Suspect]
     Indication: HIV INFECTION
     Route: 065
  2. LAMIVUDINE-HIV [Suspect]
     Indication: HIV INFECTION
     Route: 065
  3. NEVIRAPINE [Suspect]
     Indication: HIV INFECTION
     Dosage: 200MG PER DAY
     Route: 065

REACTIONS (7)
  - Toxic epidermal necrolysis [Recovered/Resolved]
  - Rash generalised [Unknown]
  - Skin disorder [Unknown]
  - Hepatitis toxic [Unknown]
  - Erythema [Unknown]
  - Blister [Unknown]
  - Skin lesion [Unknown]
